FAERS Safety Report 17397873 (Version 2)
Quarter: 2020Q1

REPORT INFORMATION
  Report Type: Spontaneous
  Country: US (occurrence: US)
  Receive Date: 20200210
  Receipt Date: 20200226
  Transmission Date: 20200409
  Serious: Yes (Hospitalization, Other)
  Sender: FDA-Public Use
  Company Number: US-ASTRAZENECA-2020SE19896

PATIENT
  Sex: Male

DRUGS (5)
  1. ZOLADEX [Suspect]
     Active Substance: GOSERELIN ACETATE
     Indication: HORMONE THERAPY
     Dosage: 3.6 MG, MONTHLY, INJECTION IN STOMACH
     Route: 058
     Dates: start: 20190314
  2. IBRANCE [Suspect]
     Active Substance: PALBOCICLIB
     Indication: BREAST CANCER
     Dosage: 125 MG TABLET BY MOUTH ONCE A DAY FOR 21 DAYS THEN OFF OF IT FOR 7 DAYS
     Route: 048
     Dates: start: 20191110, end: 20191125
  3. KISQALI [Suspect]
     Active Substance: RIBOCICLIB
     Indication: BREAST CANCER
     Dosage: UNK
     Route: 048
     Dates: start: 20191216, end: 20191229
  4. LETROZOLE. [Suspect]
     Active Substance: LETROZOLE
     Indication: LUNG NEOPLASM MALIGNANT
     Dosage: 2.5 MG, QD, BY MOUTH
     Route: 048
     Dates: start: 20191101
  5. FASLODEX [Suspect]
     Active Substance: FULVESTRANT
     Indication: BREAST CANCER
     Dosage: UNK
     Route: 030
     Dates: start: 20190314, end: 201911

REACTIONS (9)
  - Rash [Unknown]
  - Metastases to lung [Unknown]
  - Chills [Unknown]
  - Drug ineffective [Unknown]
  - Pyrexia [Unknown]
  - Urticaria [Recovering/Resolving]
  - Tremor [Unknown]
  - Peripheral swelling [Recovered/Resolved]
  - Rash vesicular [Recovered/Resolved]

NARRATIVE: CASE EVENT DATE: 20191126
